FAERS Safety Report 5014591-3 (Version None)
Quarter: 2006Q2

REPORT INFORMATION
  Report Type: 
  Country: None (occurrence: None)
  Receive Date: 20060525
  Receipt Date: 20060508
  Transmission Date: 20061013
  Serious: Yes (Other)
  Sender: FDA-Public Use
  Company Number: US200605001547

PATIENT
  Age: 26 Year
  Sex: Female

DRUGS (6)
  1. CYMBALTA [Suspect]
     Indication: DEPRESSION
     Dosage: 60 MG, DAILY (1/D)
     Dates: start: 20050101
  2. MAXALT [Concomitant]
  3. ALLOPURINOL [Concomitant]
  4. VALIUM /NET/ (DIAZEPAM) [Concomitant]
  5. HYDROCODONE BITARTRATE [Concomitant]
  6. AMBIEN [Concomitant]

REACTIONS (5)
  - DEATH OF SPOUSE [None]
  - HOMICIDE [None]
  - IMPRISONMENT [None]
  - SEDATION [None]
  - VOMITING [None]
